FAERS Safety Report 5601683-0 (Version None)
Quarter: 2008Q1

REPORT INFORMATION
  Report Type: 
  Country: None (occurrence: None)
  Receive Date: 20080111
  Receipt Date: 20071102
  Transmission Date: 20080703
  Serious: Yes (Other)
  Sender: FDA-Public Use
  Company Number: HQWYE706030NOV04

PATIENT
  Age: 52 Year
  Sex: Female

DRUGS (3)
  1. PREMPRO [Suspect]
     Indication: HORMONE REPLACEMENT THERAPY
     Dosage: ORAL
     Route: 048
     Dates: start: 19970101, end: 20020101
  2. ESTRACE [Suspect]
     Dosage: VAGINAL
     Route: 067
  3. LOESTRIN 1.5/30 [Suspect]

REACTIONS (1)
  - BREAST CANCER [None]
